FAERS Safety Report 14606573 (Version 1)
Quarter: 2018Q1

REPORT INFORMATION
  Report Type: Report from Study
  Country: None (occurrence: BR)
  Receive Date: 20180307
  Receipt Date: 20180307
  Transmission Date: 20180509
  Serious: Yes (Other)
  Sender: FDA-Public Use
  Company Number: BR-ABBVIE-18K-020-2273274-00

PATIENT
  Age: 59 Year
  Sex: Female
  Weight: 70 kg

DRUGS (3)
  1. HUMIRA [Suspect]
     Active Substance: ADALIMUMAB
     Indication: ANKYLOSING SPONDYLITIS
     Route: 058
     Dates: start: 20170509, end: 201711
  2. HYABAK [Concomitant]
     Active Substance: HYALURONATE SODIUM
     Indication: EYE PAIN
  3. TIBOLONE [Concomitant]
     Active Substance: TIBOLONE
     Indication: MENOPAUSE

REACTIONS (6)
  - Optic neuritis [Not Recovered/Not Resolved]
  - Macular oedema [Not Recovered/Not Resolved]
  - Urinary tract infection [Recovered/Resolved]
  - Immunodeficiency [Not Recovered/Not Resolved]
  - Influenza [Recovered/Resolved]
  - Uveitis [Not Recovered/Not Resolved]

NARRATIVE: CASE EVENT DATE: 201710
